FAERS Safety Report 5657770-4 (Version None)
Quarter: 2008Q1

REPORT INFORMATION
  Report Type: 
  Country: None (occurrence: None)
  Receive Date: 20080310
  Receipt Date: 20071016
  Transmission Date: 20080703
  Serious: Yes (Hospitalization)
  Sender: FDA-Public Use
  Company Number: US-ASTRAZENECA-2007AC02013

PATIENT
  Age: 75 Year
  Sex: Female

DRUGS (4)
  1. LISINOPRIL [Suspect]
  2. HYDROCHLOROTHIAZIDE [Concomitant]
  3. METOPROLOL TARTRATE [Concomitant]
  4. ASPIRIN [Concomitant]

REACTIONS (1)
  - RENAL FAILURE ACUTE [None]
